FAERS Safety Report 18876623 (Version 2)
Quarter: 2021Q2

REPORT INFORMATION
  Report Type: Spontaneous
  Country: US (occurrence: US)
  Receive Date: 20210211
  Receipt Date: 20210610
  Transmission Date: 20210717
  Serious: Yes (Other)
  Sender: FDA-Public Use
  Company Number: US-GILEAD-2021-0515541

PATIENT
  Sex: Male
  Weight: 75.28 kg

DRUGS (62)
  1. AMOXICILLIN. [Concomitant]
     Active Substance: AMOXICILLIN
  2. ANDRODERM [Concomitant]
     Active Substance: TESTOSTERONE
  3. CELECOXIB. [Concomitant]
     Active Substance: CELECOXIB
  4. PRAMOXINE HC [Concomitant]
  5. HYDROCODONE/ACETAMINOPHEN [Concomitant]
     Active Substance: ACETAMINOPHEN\HYDROCODONE
  6. LEVOFLOXACIN. [Concomitant]
     Active Substance: LEVOFLOXACIN
  7. METRONIDAZOLE. [Concomitant]
     Active Substance: METRONIDAZOLE
  8. Q?PAP [Concomitant]
     Active Substance: ACETAMINOPHEN
  9. ATRIPLA [Suspect]
     Active Substance: EFAVIRENZ\EMTRICITABINE\TENOFOVIR DISOPROXIL FUMARATE
     Indication: HIV INFECTION
     Dosage: UNK
     Route: 048
     Dates: start: 2006
  10. TRIZIVIR [Concomitant]
     Active Substance: ABACAVIR SULFATE\LAMIVUDINE\ZIDOVUDINE
  11. DIBUCAINE [CINCHOCAINE] [Concomitant]
  12. NEXIUM I.V. [Concomitant]
     Active Substance: ESOMEPRAZOLE SODIUM
  13. VIRTUSSIN AC [Concomitant]
     Active Substance: CODEINE PHOSPHATE\GUAIFENESIN
  14. ATRIPLA [Suspect]
     Active Substance: EFAVIRENZ\EMTRICITABINE\TENOFOVIR DISOPROXIL FUMARATE
     Dosage: UNK
     Route: 048
     Dates: start: 20091118, end: 20140427
  15. ATORVASTATIN [Concomitant]
     Active Substance: ATORVASTATIN
  16. BENZONATATE. [Concomitant]
     Active Substance: BENZONATATE
  17. CYCLOBENZAPRINE. [Concomitant]
     Active Substance: CYCLOBENZAPRINE
  18. IBUPROFEN. [Concomitant]
     Active Substance: IBUPROFEN
  19. PREDNISONE. [Concomitant]
     Active Substance: PREDNISONE
  20. PROCTOZONE HC [Concomitant]
     Active Substance: HYDROCORTISONE
  21. PROPOXYPHENE. [Concomitant]
     Active Substance: PROPOXYPHENE
  22. SILVER SULFADIAZINE. [Concomitant]
     Active Substance: SILVER SULFADIAZINE
  23. SULFAMETHOXAZOLE;TRIMETHOPRIM [Concomitant]
     Active Substance: SULFAMETHOXAZOLE\TRIMETHOPRIM
  24. STRIBILD [Suspect]
     Active Substance: COBICISTAT\ELVITEGRAVIR\EMTRICITABINE\TENOFOVIR DISOPROXIL FUMARATE
     Dosage: UNK
     Route: 048
     Dates: start: 20140813, end: 20190403
  25. ALIGN [Concomitant]
     Active Substance: BIFIDOBACTERIUM LONGUM SUBSP. INFANTIS
  26. CICLOPIROX. [Concomitant]
     Active Substance: CICLOPIROX
  27. DICLOFENAC [Concomitant]
     Active Substance: DICLOFENAC
  28. KETOCONAZOLE. [Concomitant]
     Active Substance: KETOCONAZOLE
  29. MESALAMINE. [Concomitant]
     Active Substance: MESALAMINE
  30. VASCEPA [Concomitant]
     Active Substance: ICOSAPENT ETHYL
  31. GEMFIBROZIL. [Concomitant]
     Active Substance: GEMFIBROZIL
  32. AVELOX [Concomitant]
     Active Substance: MOXIFLOXACIN HYDROCHLORIDE
  33. BACLOFEN. [Concomitant]
     Active Substance: BACLOFEN
  34. CLOTRIMAZOLE AND BETAMETHASONE [Concomitant]
     Active Substance: BETAMETHASONE\CLOTRIMAZOLE
  35. DIPHENOXYLATE [Concomitant]
     Active Substance: DIPHENOXYLATE
  36. FLUCONAZOLE. [Concomitant]
     Active Substance: FLUCONAZOLE
  37. FLUTICASONE. [Concomitant]
     Active Substance: FLUTICASONE
  38. TRILIPIX [Concomitant]
     Active Substance: FENOFIBRIC ACID
  39. VIAGRA [Concomitant]
     Active Substance: SILDENAFIL CITRATE
  40. CEPHALEXIN [CEFALEXIN] [Concomitant]
     Active Substance: CEPHALEXIN
  41. CHERATUSSIN AC [Concomitant]
     Active Substance: CODEINE PHOSPHATE\GUAIFENESIN
  42. CHLORHEXIDINE [Concomitant]
     Active Substance: CHLORHEXIDINE
  43. FENOFIBRATE. [Concomitant]
     Active Substance: FENOFIBRATE
  44. FENOFIBRIC ACID. [Concomitant]
     Active Substance: FENOFIBRIC ACID
  45. LYRICA [Concomitant]
     Active Substance: PREGABALIN
  46. METHOCARBAMOL. [Concomitant]
     Active Substance: METHOCARBAMOL
  47. TRICOR [ADENOSINE] [Concomitant]
     Active Substance: ADENOSINE
  48. TRAMADOL. [Concomitant]
     Active Substance: TRAMADOL
  49. CHOLESTYRAMINE. [Concomitant]
     Active Substance: CHOLESTYRAMINE
  50. ESOMEPRAZOLE. [Concomitant]
     Active Substance: ESOMEPRAZOLE MAGNESIUM
  51. GUAIATUSSIN AC [Concomitant]
     Active Substance: CODEINE PHOSPHATE\GUAIFENESIN
  52. MELOXICAM. [Concomitant]
     Active Substance: MELOXICAM
  53. PROAIR HFA [Concomitant]
     Active Substance: ALBUTEROL SULFATE
  54. ROSUVASTATIN. [Concomitant]
     Active Substance: ROSUVASTATIN
  55. SAVELLA [Concomitant]
     Active Substance: MILNACIPRAN HYDROCHLORIDE
  56. TAMSULOSIN [Concomitant]
     Active Substance: TAMSULOSIN
  57. STRIBILD [Suspect]
     Active Substance: COBICISTAT\ELVITEGRAVIR\EMTRICITABINE\TENOFOVIR DISOPROXIL FUMARATE
     Indication: HIV INFECTION
     Dosage: UNK
     Route: 048
     Dates: start: 2006
  58. BIKTARVY [Concomitant]
     Active Substance: BICTEGRAVIR SODIUM\EMTRICITABINE\TENOFOVIR ALAFENAMIDE FUMARATE
  59. ACETAMINOPHEN;CODEINE [Concomitant]
     Active Substance: ACETAMINOPHEN\CODEINE PHOSPHATE
  60. ANDROGEL [Concomitant]
     Active Substance: TESTOSTERONE
  61. FEXOFENADINE [Concomitant]
     Active Substance: FEXOFENADINE HYDROCHLORIDE
  62. VOLTAREN [DICLOFENAC] [Concomitant]
     Active Substance: DICLOFENAC SODIUM

REACTIONS (8)
  - Wrist fracture [Recovered/Resolved]
  - Hip fracture [Recovered/Resolved]
  - Bipolar disorder [Not Recovered/Not Resolved]
  - Anhedonia [Unknown]
  - Pain [Unknown]
  - Emotional distress [Unknown]
  - Anxiety [Unknown]
  - Osteoporosis [Not Recovered/Not Resolved]

NARRATIVE: CASE EVENT DATE: 2014
